FAERS Safety Report 25632280 (Version 1)
Quarter: 2025Q3

REPORT INFORMATION
  Report Type: Spontaneous
  Country: US (occurrence: None)
  Receive Date: 20250801
  Receipt Date: 20250801
  Transmission Date: 20251020
  Serious: Yes (Hospitalization)
  Sender: FDA-CTU
  Company Number: None

PATIENT
  Age: 10 Year
  Sex: Male
  Weight: 33.3 kg

DRUGS (4)
  1. DEXAMETHASONE [Suspect]
     Active Substance: DEXAMETHASONE
     Indication: Acute lymphocytic leukaemia recurrent
     Dates: start: 20250717, end: 20250728
  2. CALASPARGASE PEGOL [Concomitant]
     Active Substance: CALASPARGASE PEGOL
  3. Doxombicin hydrochloride [Concomitant]
  4. VINCRISTINE SULFATE [Concomitant]
     Active Substance: VINCRISTINE SULFATE

REACTIONS (10)
  - Hypotonia [None]
  - Tonic clonic movements [None]
  - Neck pain [None]
  - Syncope [None]
  - Supraventricular tachycardia [None]
  - Pineal gland cyst [None]
  - Hypovolaemia [None]
  - Blood sodium decreased [None]
  - Hypophagia [None]
  - Psychogenic seizure [None]

NARRATIVE: CASE EVENT DATE: 20250728
